FAERS Safety Report 8609128-3 (Version None)
Quarter: 2012Q3

REPORT INFORMATION
  Report Type: 
  Country: None (occurrence: None)
  Receive Date: 20120821
  Receipt Date: 20120808
  Transmission Date: 20120928
  Serious: Yes (Death, Life-Threatening, Hospitalization, Disabling)
  Sender: FDA-Public Use
  Company Number: US-VIROPHARMA INCORPORATED-20120718CINRY3158

PATIENT
  Sex: Female
  Weight: 98.518 kg

DRUGS (19)
  1. CINRYZE [Suspect]
     Dates: start: 20111107, end: 20111107
  2. NUVARING [Suspect]
     Indication: CONTRACEPTION
     Dates: start: 20110903, end: 20110924
  3. CITALOPRAM HYDROBROMIDE [Concomitant]
     Indication: DEPRESSION
     Route: 048
  4. CINRYZE [Suspect]
     Indication: HEREDITARY ANGIOEDEMA
     Dates: start: 20091001, end: 20091001
  5. CINRYZE [Suspect]
     Dates: start: 20120709
  6. EPIPEN [Concomitant]
     Indication: HYPERSENSITIVITY
     Route: 030
  7. METOPROLOL TARTRATE [Concomitant]
     Indication: HYPERTENSION
     Route: 065
  8. CINRYZE [Suspect]
     Dates: start: 20110824, end: 20110824
  9. MELATONIN [Concomitant]
     Indication: INSOMNIA
     Route: 048
  10. CINRYZE [Suspect]
     Dates: start: 20120206, end: 20120206
  11. CINRYZE [Suspect]
     Dates: start: 20120213, end: 20120213
  12. CLONAZEPAM [Concomitant]
     Indication: ANXIETY
     Route: 048
  13. FEXOFENADINE [Concomitant]
     Indication: SEASONAL ALLERGY
     Route: 048
  14. REMERON [Concomitant]
     Indication: PRODUCT USED FOR UNKNOWN INDICATION
     Route: 048
  15. CINRYZE [Suspect]
     Dates: start: 20120628, end: 20120628
  16. ORTHO TRI-CYCLEN LO [Suspect]
     Indication: CONTRACEPTION
     Route: 065
  17. NORTRIPTYLINE [Concomitant]
     Indication: PRODUCT USED FOR UNKNOWN INDICATION
     Route: 065
  18. PRILOSEC [Concomitant]
     Indication: GASTROOESOPHAGEAL REFLUX DISEASE
     Route: 065
  19. CINRYZE [Suspect]
     Dates: start: 20101127, end: 20101127

REACTIONS (9)
  - CARDIAC ARREST [None]
  - HEREDITARY ANGIOEDEMA [None]
  - CONVULSION [None]
  - CEREBRAL INFARCTION [None]
  - SYNCOPE [None]
  - DEPRESSION [None]
  - ACUTE SINUSITIS [None]
  - PULMONARY EMBOLISM [None]
  - OFF LABEL USE [None]
